FAERS Safety Report 7201679-1 (Version None)
Quarter: 2010Q4

REPORT INFORMATION
  Report Type: 
  Country: None (occurrence: None)
  Receive Date: 20101229
  Receipt Date: 20101221
  Transmission Date: 20110411
  Serious: Yes (Other)
  Sender: FDA-Public Use
  Company Number: DE-PFIZER INC-2010163310

PATIENT
  Age: 71 Year
  Sex: Female
  Weight: 55 kg

DRUGS (3)
  1. LYRICA [Suspect]
     Indication: POLYNEUROPATHY
     Dosage: UNK MG, UNK
     Route: 048
     Dates: start: 20100604, end: 20100625
  2. LYRICA [Suspect]
     Dosage: UNK MG, UNK
     Route: 048
     Dates: start: 20100626, end: 20100710
  3. LYRICA [Suspect]
     Dosage: UNK MG, UNK
     Route: 048
     Dates: start: 20100823, end: 20101129

REACTIONS (1)
  - LEUKOCYTOCLASTIC VASCULITIS [None]
